FAERS Safety Report 4275944-4 (Version None)
Quarter: 2004Q1

REPORT INFORMATION
  Report Type: 
  Country: None (occurrence: None)
  Receive Date: 20040121
  Receipt Date: 20030321
  Transmission Date: 20041129
  Serious: No
  Sender: FDA-Public Use
  Company Number: US-GLAXOSMITHKLINE-A0402688A

PATIENT
  Age: 24 Year
  Sex: Female
  Weight: 50 kg

DRUGS (2)
  1. VALTREX [Suspect]
     Dosage: 500MG PER DAY
     Route: 048
  2. DIFLUCAN [Concomitant]
     Dosage: 100MG UNKNOWN

REACTIONS (3)
  - DIZZINESS [None]
  - HOT FLUSH [None]
  - RASH [None]
